FAERS Safety Report 10015754 (Version 1)
Quarter: 2014Q1

REPORT INFORMATION
  Report Type: Spontaneous
  Country: US (occurrence: US)
  Receive Date: 20140317
  Receipt Date: 20140317
  Transmission Date: 20141002
  Serious: Yes (Hospitalization)
  Sender: FDA-Public Use
  Company Number: US-MYLANLABS-2014S1005067

PATIENT
  Age: 16 Year
  Sex: Female

DRUGS (5)
  1. BUPROPION HCL ER [Suspect]
     Indication: DRUG ABUSE
     Dosage: NEARLY TEN DAYS^ WORTH
     Route: 048
  2. BUPROPION HCL ER [Suspect]
     Indication: OFF LABEL USE
     Dosage: NEARLY TEN DAYS^ WORTH
     Route: 048
  3. FLUOXETINE [Concomitant]
     Dosage: NEARLY TEN DAYS^ WORTH
     Route: 048
  4. ARIPIPRAZOLE [Concomitant]
     Dosage: NEARLY TEN DAYS^ WORTH
     Route: 048
  5. TOPIRAMATE [Concomitant]
     Dosage: NEARLY TEN DAYS^ WORTH
     Route: 048

REACTIONS (2)
  - Convulsion [Recovered/Resolved]
  - Drug abuse [Recovered/Resolved]
